FAERS Safety Report 9571468 (Version 1)
Quarter: 2013Q3

REPORT INFORMATION
  Report Type: Spontaneous
  Country: US (occurrence: None)
  Receive Date: 20130927
  Receipt Date: 20130927
  Transmission Date: 20140515
  Serious: No
  Sender: FDA-Public Use
  Company Number: None

PATIENT
  Age: 70 None
  Sex: Female
  Weight: 62.14 kg

DRUGS (11)
  1. MELOXICAM [Suspect]
     Indication: ARTHRALGIA
     Route: 048
     Dates: start: 20130830, end: 20130909
  2. MELOXICAM [Suspect]
     Indication: PAIN IN EXTREMITY
     Route: 048
     Dates: start: 20130830, end: 20130909
  3. ZOCOR 10 MG COMPRESSE RIVESTITE CON FILM [Concomitant]
  4. VITAMIN C [Concomitant]
  5. VITAMIN B [Concomitant]
  6. CALCIUM [Concomitant]
  7. BIOTIN [Concomitant]
  8. FISH OIL [Concomitant]
  9. MULTI-VITAMIN [Concomitant]
  10. ZOCOR [Concomitant]
  11. DYOZIDE [Concomitant]

REACTIONS (4)
  - Fatigue [None]
  - Dizziness [None]
  - Diarrhoea [None]
  - Faeces discoloured [None]
